FAERS Safety Report 4398361-5 (Version None)
Quarter: 2004Q3

REPORT INFORMATION
  Report Type: 
  Country: None (occurrence: None)
  Receive Date: 20040714
  Receipt Date: 20040714
  Transmission Date: 20050211
  Serious: No
  Sender: FDA-Public Use
  Company Number: None

PATIENT
  Age: 52 Year
  Sex: Male
  Weight: 104.3273 kg

DRUGS (4)
  1. SPIRIVA [Suspect]
     Indication: CHRONIC OBSTRUCTIVE AIRWAYS DISEASE
     Dosage: 1 CAPSULE (18 MG ) 9TR
     Dates: start: 20040526, end: 20040601
  2. PULMICORT [Concomitant]
  3. SEREVENT [Concomitant]
  4. COMBINENT [Concomitant]

REACTIONS (2)
  - HYPERHIDROSIS [None]
  - PYREXIA [None]
